FAERS Safety Report 8610947-8 (Version None)
Quarter: 2012Q3

REPORT INFORMATION
  Report Type: 
  Country: None (occurrence: None)
  Receive Date: 20120809
  Receipt Date: 20120803
  Transmission Date: 20120928
  Serious: Yes (Life-Threatening, Hospitalization, Disabling)
  Sender: FDA-Public Use
  Company Number: DSA_57528_2012

PATIENT
  Sex: Male

DRUGS (1)
  1. XENAZINE [Suspect]
     Indication: HUNTINGTON'S DISEASE
     Dosage: 12.5 MG TID ORAL
     Route: 048
     Dates: start: 20120509, end: 20120101

REACTIONS (6)
  - DYSPHAGIA [None]
  - TRAUMATIC RENAL INJURY [None]
  - TIC [None]
  - FALL [None]
  - HALLUCINATION, AUDITORY [None]
  - FRACTURE [None]
